FAERS Safety Report 15954555 (Version 1)
Quarter: 2019Q1

REPORT INFORMATION
  Report Type: Spontaneous
  Country: US (occurrence: US)
  Receive Date: 20190213
  Receipt Date: 20190213
  Transmission Date: 20190417
  Serious: No
  Sender: FDA-Public Use
  Company Number: PHEH2019US005692

PATIENT
  Age: 29 Year
  Sex: Female

DRUGS (1)
  1. ALPRAZOLAM. [Suspect]
     Active Substance: ALPRAZOLAM
     Indication: PRODUCT USED FOR UNKNOWN INDICATION
     Dosage: 2 MG, QID
     Route: 065

REACTIONS (5)
  - Mania [Unknown]
  - Depression [Unknown]
  - Drug hypersensitivity [Unknown]
  - Obsessive-compulsive disorder [Unknown]
  - Logorrhoea [Unknown]
